FAERS Safety Report 9915002 (Version 2)
Quarter: 2014Q1

REPORT INFORMATION
  Report Type: Report from Study
  Country: BR (occurrence: BR)
  Receive Date: 20140220
  Receipt Date: 20140225
  Transmission Date: 20141002
  Serious: Yes (Other)
  Sender: FDA-Public Use
  Company Number: PHHY2014BR018773

PATIENT
  Sex: Female
  Weight: 60 kg

DRUGS (2)
  1. EXELON [Suspect]
     Indication: DEMENTIA ALZHEIMER^S TYPE
     Dosage: 4.5 MG, 2 TIMES A DAY (EVERY 12 HOURS)
     Dates: end: 201401
  2. EXELON [Suspect]
     Dosage: 2 MG, BID (MORNING AND NIGHT)
     Dates: start: 2004

REACTIONS (10)
  - Parkinson^s disease [Unknown]
  - Abdominal distension [Unknown]
  - Fall [Unknown]
  - Gait disturbance [Unknown]
  - Aggression [Unknown]
  - Insomnia [Unknown]
  - Vomiting [Unknown]
  - Agitation [Unknown]
  - Amnesia [Unknown]
  - Drug ineffective [Unknown]
